FAERS Safety Report 7736964-8 (Version None)
Quarter: 2011Q3

REPORT INFORMATION
  Report Type: 
  Country: None (occurrence: None)
  Receive Date: 20110908
  Receipt Date: 20110831
  Transmission Date: 20111222
  Serious: Yes (Life-Threatening, Hospitalization, Other)
  Sender: FDA-Public Use
  Company Number: CH-ROCHE-764558

PATIENT
  Sex: Female

DRUGS (2)
  1. PEGASYS [Suspect]
     Indication: HEPATITIS C
     Dosage: DOSE AND FREQUENCY UNKNOWN
     Route: 058
     Dates: start: 20061121
  2. COPEGUS [Interacting]
     Indication: HEPATITIS C
     Dosage: DOSE + FREQUENCY : 10MG ? TAB. PER DAY
     Route: 048
     Dates: start: 20061121

REACTIONS (7)
  - CARDIAC OPERATION [None]
  - ENDOCARDITIS [None]
  - MULTI-ORGAN FAILURE [None]
  - DRUG INTERACTION [None]
  - ARTHROPATHY [None]
  - SEPSIS [None]
  - LEG AMPUTATION [None]
